FAERS Safety Report 21817420 (Version 4)
Quarter: 2023Q2

REPORT INFORMATION
  Report Type: Spontaneous
  Country: US (occurrence: US)
  Receive Date: 20230104
  Receipt Date: 20230614
  Transmission Date: 20230722
  Serious: Yes (Other)
  Sender: FDA-Public Use
  Company Number: US-PFIZER INC-2020390008

PATIENT
  Age: 43 Year
  Sex: Female

DRUGS (2)
  1. XELJANZ XR [Suspect]
     Active Substance: TOFACITINIB CITRATE
     Indication: Rheumatoid arthritis
     Dosage: 11 MG, DAILY
     Route: 048
     Dates: start: 202008
  2. XELJANZ XR [Suspect]
     Active Substance: TOFACITINIB CITRATE
     Dosage: 11 MG, DAILY
     Route: 048
     Dates: start: 20221127

REACTIONS (9)
  - Osteonecrosis [Unknown]
  - Osteonecrosis [Unknown]
  - Discouragement [Unknown]
  - Pain [Unknown]
  - Herpes zoster [Unknown]
  - COVID-19 [Unknown]
  - Movement disorder [Unknown]
  - Feeling hot [Unknown]
  - Pain in extremity [Unknown]
